FAERS Safety Report 5409213-3 (Version None)
Quarter: 2007Q3

REPORT INFORMATION
  Report Type: 
  Country: None (occurrence: None)
  Receive Date: 20070807
  Receipt Date: 20070807
  Transmission Date: 20080115
  Serious: Yes (Hospitalization)
  Sender: FDA-Public Use
  Company Number: None

PATIENT
  Sex: Female
  Weight: 57.2 kg

DRUGS (8)
  1. MEGACE [Suspect]
     Indication: WEIGHT DECREASED
     Dosage: 200ML DAILY PO
     Route: 048
     Dates: start: 20070416, end: 20070722
  2. PHENERGAN HCL [Concomitant]
  3. SYNTHROID [Concomitant]
  4. TUSSIONEX [Concomitant]
  5. LORTAB ELIXER [Concomitant]
  6. LOTENSIN [Concomitant]
  7. BACTRIM DS [Concomitant]
  8. LEVAQUIN [Concomitant]

REACTIONS (3)
  - BRONCHITIS [None]
  - MENTAL STATUS CHANGES [None]
  - STAPHYLOCOCCAL INFECTION [None]
